FAERS Safety Report 19059371 (Version 1)
Quarter: 2021Q1

REPORT INFORMATION
  Report Type: Other
  Country: US (occurrence: US)
  Receive Date: 20210326
  Receipt Date: 20210326
  Transmission Date: 20210420
  Serious: Yes (Other)
  Sender: FDA-Public Use
  Company Number: US-ROCHE-2792737

PATIENT

DRUGS (3)
  1. TOCILIZUMAB. [Suspect]
     Active Substance: TOCILIZUMAB
     Indication: COVID-19
     Route: 065
  2. REMDESIVIR. [Suspect]
     Active Substance: REMDESIVIR
     Indication: COVID-19
     Route: 065
  3. HYDROXYCHLOROQUINE [Suspect]
     Active Substance: HYDROXYCHLOROQUINE
     Indication: COVID-19
     Route: 065

REACTIONS (18)
  - Klebsiella infection [Unknown]
  - Bacteraemia [Unknown]
  - Urinary tract infection [Unknown]
  - Escherichia infection [Unknown]
  - Enterobacter infection [Unknown]
  - Proteus infection [Unknown]
  - Pseudomonas infection [Unknown]
  - Citrobacter infection [Unknown]
  - Stenotrophomonas infection [Unknown]
  - Clostridium difficile infection [Unknown]
  - Streptococcal infection [Unknown]
  - Infection [Unknown]
  - Off label use [Unknown]
  - Acinetobacter infection [Unknown]
  - Serratia infection [Unknown]
  - Staphylococcal infection [Unknown]
  - Pneumonia [Unknown]
  - Candida infection [Unknown]
